FAERS Safety Report 8937138 (Version 2)
Quarter: 2012Q4

REPORT INFORMATION
  Report Type: Spontaneous
  Country: GB (occurrence: None)
  Receive Date: 20121123
  Receipt Date: 20121128
  Transmission Date: 20130627
  Serious: Yes (Death)
  Sender: FDA-Public Use
  Company Number: 2012287579

PATIENT
  Sex: Male

DRUGS (2)
  1. FRAGMIN (DALTEPARIN SODIUM) SOLUTION FOR INJECTION [Suspect]
     Indication: ANTIPLATELET THERAPY
  2. PLAVIX [Suspect]
     Indication: ANTIPLATELET THERAPY
     Route: 048

REACTIONS (4)
  - Drug interaction [None]
  - Fall [None]
  - Cerebral haemorrhage [None]
  - Head injury [None]
